FAERS Safety Report 7531464-2 (Version None)
Quarter: 2011Q2

REPORT INFORMATION
  Report Type: 
  Country: None (occurrence: None)
  Receive Date: 20110608
  Receipt Date: 20110601
  Transmission Date: 20111010
  Serious: Yes (Other)
  Sender: FDA-Public Use
  Company Number: US-GENZYME-CERZ-1002102

PATIENT
  Sex: Male
  Weight: 104.5 kg

DRUGS (2)
  1. CEREZYME [Suspect]
     Indication: GAUCHER'S DISEASE
     Dosage: 57 U/KG, Q2W
     Route: 042
  2. VELAGLUCERASE ALFA [Concomitant]
     Indication: GAUCHER'S DISEASE
     Dosage: UNK
     Route: 065
     Dates: start: 20100601, end: 20101201

REACTIONS (1)
  - PLASMACYTOSIS [None]
